FAERS Safety Report 9239953 (Version 3)
Quarter: 2014Q1

REPORT INFORMATION
  Report Type: Spontaneous
  Country: US (occurrence: US)
  Receive Date: 20130418
  Receipt Date: 20140102
  Transmission Date: 20141002
  Serious: Yes (Hospitalization, Other)
  Sender: FDA-Public Use
  Company Number: US-PFIZER INC-2013117745

PATIENT
  Age: 59 Year
  Sex: Female
  Weight: 68.03 kg

DRUGS (12)
  1. DETROL LA [Suspect]
     Indication: URINARY INCONTINENCE
     Dosage: 4 MG, 1X/DAY
     Route: 048
     Dates: start: 1991
  2. DETROL LA [Suspect]
     Indication: HYPERTONIC BLADDER
  3. ASPIRIN [Concomitant]
     Dosage: 81 MG, UNK
  4. DICYCLOMINE [Concomitant]
     Dosage: 10 MG, UNK
  5. LEVOTHYROXINE [Concomitant]
     Dosage: UNK
  6. LOSARTAN [Concomitant]
     Dosage: 100 MG, UNK
  7. MELOXICAM [Concomitant]
     Dosage: 15 MG, UNK
  8. MONTELUKAST [Concomitant]
     Dosage: 10 MG, UNK
  9. CLONAZEPAM [Concomitant]
     Dosage: UNK
  10. GABAPENTIN [Concomitant]
     Dosage: 300 MG, 4X/DAY
  11. ACIPHEX [Concomitant]
     Indication: GASTROOESOPHAGEAL REFLUX DISEASE
     Dosage: UNK
  12. LEVOXYL [Concomitant]
     Indication: HYPOTHYROIDISM
     Dosage: UNK

REACTIONS (4)
  - Musculoskeletal pain [Unknown]
  - Pain in extremity [Unknown]
  - Back pain [Unknown]
  - Blood iron decreased [Unknown]
